FAERS Safety Report 20461920 (Version 1)
Quarter: 2022Q1

REPORT INFORMATION
  Report Type: Spontaneous
  Country: US (occurrence: US)
  Receive Date: 20220211
  Receipt Date: 20220211
  Transmission Date: 20220423
  Serious: Yes (Other)
  Sender: FDA-Public Use
  Company Number: US-TAKEDA-2022TUS007051

PATIENT

DRUGS (1)
  1. ADDERALL XR [Suspect]
     Active Substance: AMPHETAMINE ASPARTATE\AMPHETAMINE SULFATE\DEXTROAMPHETAMINE SACCHARATE\DEXTROAMPHETAMINE SULFATE
     Indication: Product used for unknown indication
     Dosage: 5 DOSAGE FORM, QD
     Route: 065

REACTIONS (6)
  - Drug dependence [Unknown]
  - Feeling abnormal [Unknown]
  - Paranoia [Unknown]
  - Anxiety [Unknown]
  - Off label use [Unknown]
  - Inability to afford medication [Unknown]
